FAERS Safety Report 7544241-3 (Version None)
Quarter: 2011Q2

REPORT INFORMATION
  Report Type: 
  Country: None (occurrence: None)
  Receive Date: 20110613
  Receipt Date: 20070615
  Transmission Date: 20111010
  Serious: Yes (Other)
  Sender: FDA-Public Use
  Company Number: PHHO2005CA06734

PATIENT
  Sex: Female

DRUGS (5)
  1. SANDOSTATIN LAR [Suspect]
     Dosage: 30 MG EVERY FOUR WEEKS
  2. CORTISONE ACETATE [Concomitant]
  3. LEVOTHYROXINE SODIUM [Concomitant]
  4. GABAPENTIN [Concomitant]
  5. SANDOSTATIN LAR [Suspect]
     Dosage: 20 MG, ONCE A MONTH
     Dates: start: 20041103

REACTIONS (19)
  - INSULIN-LIKE GROWTH FACTOR INCREASED [None]
  - NECK PAIN [None]
  - INTRAOCULAR PRESSURE INCREASED [None]
  - DIPLOPIA [None]
  - BIOPSY EYELID [None]
  - INFLUENZA LIKE ILLNESS [None]
  - NERVOUSNESS [None]
  - ERYTHEMA OF EYELID [None]
  - HORDEOLUM [None]
  - HEADACHE [None]
  - SINUS DISORDER [None]
  - MUSCULOSKELETAL DISCOMFORT [None]
  - EYELID DISORDER [None]
  - CONTUSION [None]
  - MUSCULOSKELETAL STIFFNESS [None]
  - CATARACT [None]
  - EYELID OEDEMA [None]
  - FALL [None]
  - JAW DISORDER [None]
